FAERS Safety Report 4875993-9 (Version None)
Quarter: 2005Q4

REPORT INFORMATION
  Report Type: 
  Country: None (occurrence: None)
  Receive Date: 20051207
  Receipt Date: 20050225
  Transmission Date: 20060501
  Serious: Yes (Other)
  Sender: FDA-Public Use
  Company Number: 2005-BP-03444BP

PATIENT
  Age: 74 Year
  Sex: Male
  Weight: 95.71 kg

DRUGS (1)
  1. PERSANTINE [Suspect]
     Indication: CARDIAC STRESS TEST
     Dosage: 53. 7 MG (SEE TEXT, 10MG/2M1)
     Dates: start: 20041214

REACTIONS (2)
  - CHEST PAIN [None]
  - HEADACHE [None]
